FAERS Safety Report 4523927-9 (Version None)
Quarter: 2004Q4

REPORT INFORMATION
  Report Type: 
  Country: None (occurrence: None)
  Receive Date: 20041209
  Receipt Date: 20041206
  Transmission Date: 20050328
  Serious: Yes (Other)
  Sender: FDA-Public Use
  Company Number: HQWYE187101NOV04

PATIENT
  Age: 56 Year
  Sex: Male
  Weight: 81.72 kg

DRUGS (1)
  1. ADVIL [Suspect]
     Indication: HEADACHE
     Dosage: 2 TABLETS AS NEEDED, ORAL
     Route: 048
     Dates: start: 20000101, end: 20040701

REACTIONS (9)
  - APHASIA [None]
  - CHEST DISCOMFORT [None]
  - DYSPNOEA [None]
  - FLUSHING [None]
  - FOAMING AT MOUTH [None]
  - HYPERHIDROSIS [None]
  - OEDEMA PERIPHERAL [None]
  - PRURITUS [None]
  - VISION BLURRED [None]
